FAERS Safety Report 7138774-1 (Version None)
Quarter: 2010Q4

REPORT INFORMATION
  Report Type: 
  Country: None (occurrence: None)
  Receive Date: 20101202
  Receipt Date: 20101202
  Transmission Date: 20110411
  Serious: Yes (Hospitalization)
  Sender: FDA-Public Use
  Company Number: None

PATIENT
  Age: 72 Year
  Sex: Male
  Weight: 89 kg

DRUGS (1)
  1. TERAZOSIN HCL [Suspect]
     Dosage: 5 MG AT BEDTIME PO
     Route: 048
     Dates: start: 20090827, end: 20100710

REACTIONS (1)
  - HYPOTENSION [None]
